FAERS Safety Report 6707059-7 (Version None)
Quarter: 2010Q2

REPORT INFORMATION
  Report Type: 
  Country: None (occurrence: None)
  Receive Date: 20100503
  Receipt Date: 20100428
  Transmission Date: 20101027
  Serious: Yes (Hospitalization)
  Sender: FDA-Public Use
  Company Number: AU-B.I. PHARMACEUTICALS,INC./RIDGEFIELD-2010-AU-00348AU

PATIENT
  Sex: Male
  Weight: 30 kg

DRUGS (6)
  1. CATAPRES [Suspect]
     Indication: ORCHIDOPEXY
     Dosage: 37.5 MCG
     Route: 042
     Dates: start: 20090412
  2. FENTANYL [Concomitant]
     Indication: ORCHIDOPEXY
  3. PROPOFOL [Concomitant]
     Indication: ORCHIDOPEXY
  4. OXYGEN [Concomitant]
     Indication: ORCHIDOPEXY
  5. SEVOFLURANE [Concomitant]
     Indication: ORCHIDOPEXY
  6. PARACETAMOL [Concomitant]
     Route: 042

REACTIONS (3)
  - BLOOD PRESSURE DECREASED [None]
  - HEART RATE DECREASED [None]
  - SOMNOLENCE [None]
